FAERS Safety Report 22827512 (Version 4)
Quarter: 2023Q4

REPORT INFORMATION
  Report Type: Report from Study
  Country: NL (occurrence: NL)
  Receive Date: 20230816
  Receipt Date: 20231004
  Transmission Date: 20240109
  Serious: Yes (Other)
  Sender: FDA-Public Use
  Company Number: NL-AMX-002662

PATIENT
  Age: 64 Year
  Sex: Male
  Weight: 73.5 kg

DRUGS (9)
  1. SODIUM PHENYLBUTYRATE\TAURURSODIOL [Suspect]
     Active Substance: SODIUM PHENYLBUTYRATE\TAURURSODIOL
     Indication: Amyotrophic lateral sclerosis
     Route: 048
     Dates: start: 20230116, end: 20230423
  2. ACETAMINOPHEN [Concomitant]
     Active Substance: ACETAMINOPHEN
     Indication: Pancreatitis
     Dosage: TIME INTERVAL: AS NECESSARY: UNKNOWN
     Route: 048
     Dates: start: 20230423
  3. RILUZOLE [Concomitant]
     Active Substance: RILUZOLE
     Indication: Amyotrophic lateral sclerosis
     Dosage: 2 DAILY.
     Route: 048
     Dates: start: 20210419
  4. LORATADINE [Concomitant]
     Active Substance: LORATADINE
     Indication: Seasonal allergy
     Dosage: TIME INTERVAL: AS NECESSARY
  5. PENICILLIN G BENZATHINE [Concomitant]
     Active Substance: PENICILLIN G BENZATHINE
     Route: 048
     Dates: start: 20210601
  6. PENICILLIN G BENZATHINE [Concomitant]
     Active Substance: PENICILLIN G BENZATHINE
     Route: 048
  7. Orthica D-50 [Concomitant]
     Indication: Vitamin D decreased
     Route: 048
     Dates: start: 20230116
  8. OXAZEPAM [Concomitant]
     Active Substance: OXAZEPAM
     Indication: Product used for unknown indication
     Route: 048
  9. Azelastine/fluticasone nasal spray [Concomitant]
     Indication: Product used for unknown indication
     Dosage: 137/50 MCG/DOSE 2 X PER DAY
     Route: 045

REACTIONS (1)
  - Pancreatitis [Recovered/Resolved]

NARRATIVE: CASE EVENT DATE: 20230427
